FAERS Safety Report 18313949 (Version 5)
Quarter: 2020Q4

REPORT INFORMATION
  Report Type: Report from Study
  Country: KR (occurrence: KR)
  Receive Date: 20200925
  Receipt Date: 20201027
  Transmission Date: 20210113
  Serious: Yes (Death)
  Sender: FDA-Public Use
  Company Number: KR-EISAI MEDICAL RESEARCH-EC-2020-081159

PATIENT
  Age: 79 Year
  Sex: Male
  Weight: 50.7 kg

DRUGS (24)
  1. LENVATINIB [Suspect]
     Active Substance: LENVATINIB
     Indication: NON-SMALL CELL LUNG CANCER
     Route: 048
     Dates: start: 20200805, end: 20200907
  2. DUPHALAC [Concomitant]
     Active Substance: LACTULOSE
     Dates: start: 20200713
  3. MAGMIL [Concomitant]
     Active Substance: MAGNESIUM HYDROXIDE
     Dates: start: 20200713
  4. TARGIN [Concomitant]
     Active Substance: NALOXONE HYDROCHLORIDE\OXYCODONE HYDROCHLORIDE
     Dates: start: 20200818
  5. NORVASC [Concomitant]
     Active Substance: AMLODIPINE BESYLATE
     Dates: start: 20200818
  6. CHLORPHENIRAMINE. [Concomitant]
     Active Substance: CHLORPHENIRAMINE
     Route: 042
     Dates: start: 20200916, end: 20200916
  7. BLOOD CELLS RED [Concomitant]
     Dates: start: 20200909, end: 20200916
  8. BETMIGA [Concomitant]
     Active Substance: MIRABEGRON
     Dates: start: 20170613
  9. CHLORPHENIRAMINE MALEATE + DIHYDROCEDEINE BITARTRATE+ GUAIFENESIN+METH [Concomitant]
     Dates: start: 20200623
  10. MYPOL [Concomitant]
     Dates: start: 20200708
  11. IRCODON [Concomitant]
     Active Substance: OXYCODONE HYDROCHLORIDE
     Dates: start: 20200825
  12. DEXAMETHASONE. [Concomitant]
     Active Substance: DEXAMETHASONE
     Dates: start: 20200825
  13. GLIATILIN [Concomitant]
     Active Substance: CHOLINE ALFOSCERATE
     Dates: start: 20190625
  14. HARNAL [Concomitant]
     Active Substance: TAMSULOSIN HYDROCHLORIDE
     Dates: start: 20170703
  15. LYRICA [Concomitant]
     Active Substance: PREGABALIN
     Dates: start: 20200825
  16. PEMBROLIZUMAB. [Suspect]
     Active Substance: PEMBROLIZUMAB
     Indication: NON-SMALL CELL LUNG CANCER
     Route: 041
     Dates: start: 20200805, end: 20200825
  17. LEXAPRO [Concomitant]
     Active Substance: ESCITALOPRAM OXALATE
     Dates: start: 20190422
  18. DICLOMED [Concomitant]
     Dates: start: 20200818, end: 20200907
  19. ERDOS [Concomitant]
     Active Substance: ERDOSTEINE
     Dates: start: 20200623
  20. MEGACE [Concomitant]
     Active Substance: MEGESTROL ACETATE
     Dates: start: 20200716
  21. MOVELOXIN [Concomitant]
     Dates: start: 20200908, end: 20200914
  22. TRANSAMIN [Concomitant]
     Active Substance: TRANEXAMIC ACID
     Dates: start: 20200915
  23. PEMBROLIZUMAB. [Suspect]
     Active Substance: PEMBROLIZUMAB
     Route: 041
     Dates: start: 20200915, end: 20200915
  24. CHLORPHENIRAMINE. [Concomitant]
     Active Substance: CHLORPHENIRAMINE
     Route: 042
     Dates: start: 20200909, end: 20200909

REACTIONS (1)
  - Death [Fatal]

NARRATIVE: CASE EVENT DATE: 20200920
